FAERS Safety Report 7215033-X (Version None)
Quarter: 2011Q1

REPORT INFORMATION
  Report Type: 
  Country: None (occurrence: None)
  Receive Date: 20110107
  Receipt Date: 20100921
  Transmission Date: 20110831
  Serious: No
  Sender: FDA-Public Use
  Company Number: A0870948A

PATIENT
  Age: 49 Year
  Sex: Male
  Weight: 113.2 kg

DRUGS (6)
  1. LISINOPRIL [Suspect]
     Indication: BLOOD PRESSURE
     Dosage: 10MG UNKNOWN
  2. RISPERDAL [Suspect]
     Route: 065
  3. LOVAZA [Suspect]
     Dosage: 2G TWICE PER DAY
     Route: 065
  4. CHANTIX [Suspect]
     Dosage: .5MG PER DAY
  5. WELCHOL [Suspect]
     Dosage: 650MG THREE TIMES PER DAY
     Route: 065
  6. PROZAC [Suspect]
     Dosage: 60MG PER DAY
     Route: 065

REACTIONS (2)
  - FEELING ABNORMAL [None]
  - DRUG INTERACTION [None]
